FAERS Safety Report 6390452-2 (Version None)
Quarter: 2009Q4

REPORT INFORMATION
  Report Type: 
  Country: None (occurrence: None)
  Receive Date: 20091003
  Receipt Date: 20090927
  Transmission Date: 20100525
  Serious: Yes (Death, Hospitalization)
  Sender: FDA-Public Use
  Company Number: 2009SP027601

PATIENT
  Sex: Male

DRUGS (2)
  1. PEG-INTRON [Suspect]
     Indication: HEPATITIS C
     Dates: start: 20090403, end: 20090612
  2. REBETOL [Suspect]
     Indication: HEPATITIS C
     Dates: start: 20090403, end: 20090612

REACTIONS (4)
  - GASTROINTESTINAL DISORDER [None]
  - HEPATIC CIRRHOSIS [None]
  - HEPATITIS CHOLESTATIC [None]
  - HEPATOTOXICITY [None]
